FAERS Safety Report 10519701 (Version 1)
Quarter: 2014Q4

REPORT INFORMATION
  Report Type: Spontaneous
  Country: DE (occurrence: DE)
  Receive Date: 20141015
  Receipt Date: 20141015
  Transmission Date: 20150528
  Serious: Yes (Other)
  Sender: FDA-Public Use
  Company Number: DE-PFIZER INC-2014280881

PATIENT
  Age: 64 Year
  Sex: Female

DRUGS (1)
  1. CORDAREX [Suspect]
     Active Substance: AMIODARONE
     Dosage: UNK
     Route: 048
     Dates: start: 20140806

REACTIONS (2)
  - Oesophageal irritation [Not Recovered/Not Resolved]
  - Oesophagitis [Not Recovered/Not Resolved]

NARRATIVE: CASE EVENT DATE: 20140807
